FAERS Safety Report 19352790 (Version 4)
Quarter: 2021Q4

REPORT INFORMATION
  Report Type: Report from Study
  Country: DE (occurrence: DE)
  Receive Date: 20210531
  Receipt Date: 20211206
  Transmission Date: 20220304
  Serious: Yes (Other)
  Sender: FDA-Public Use
  Company Number: DE-AMGEN-DEUNI2021081582

PATIENT
  Age: 77 Year
  Sex: Female
  Weight: 66 kg

DRUGS (35)
  1. PANITUMUMAB [Suspect]
     Active Substance: PANITUMUMAB
     Indication: Colorectal cancer metastatic
     Dosage: 400 MILLIGRAM
     Route: 042
     Dates: start: 20200902
  2. PANITUMUMAB [Suspect]
     Active Substance: PANITUMUMAB
     Dosage: 360 MILLIGRAM
     Route: 042
     Dates: start: 20210324
  3. LEUCOVORIN [Suspect]
     Active Substance: LEUCOVORIN
     Indication: Colorectal cancer metastatic
     Dosage: 680 MILLIGRAM
     Route: 065
     Dates: start: 20200902
  4. LEUCOVORIN [Suspect]
     Active Substance: LEUCOVORIN
     Dosage: 640 MILLIGRAM
     Route: 065
     Dates: start: 20210324
  5. FLUOROURACIL [Suspect]
     Active Substance: FLUOROURACIL
     Indication: Colorectal cancer metastatic
     Dosage: 4080 MILLIGRAM
     Route: 042
     Dates: start: 20200902
  6. FLUOROURACIL [Suspect]
     Active Substance: FLUOROURACIL
     Dosage: 3840 MILLIGRAM
     Route: 042
     Dates: start: 20210324
  7. OXALIPLATIN [Suspect]
     Active Substance: OXALIPLATIN
     Indication: Colorectal cancer metastatic
     Dosage: 115 MILLIGRAM
     Route: 065
     Dates: start: 20200902
  8. OXALIPLATIN [Suspect]
     Active Substance: OXALIPLATIN
     Dosage: 144 MILLIGRAM
     Route: 065
     Dates: start: 20200916
  9. MCP [Concomitant]
     Active Substance: METOCLOPRAMIDE HYDROCHLORIDE
     Indication: Nausea
     Dosage: 10 MILLIGRAM, AS NECESSARY
     Route: 048
     Dates: start: 20200902
  10. PROCHLORPERAZINE [Concomitant]
     Active Substance: PROCHLORPERAZINE
     Indication: Pain
     Dosage: 500 MILLIGRAM, QID
     Route: 048
     Dates: start: 2020
  11. DEXAMETHASONE [Concomitant]
     Active Substance: DEXAMETHASONE
     Dosage: 8 MILLIGRAM, CYCLICAL
     Route: 042
     Dates: start: 20200902, end: 20210505
  12. LOPERAMIDE [Concomitant]
     Active Substance: LOPERAMIDE
     Indication: Diarrhoea
     Dosage: 1.86 MILLIGRAM, AS NECESSARY
     Route: 048
     Dates: start: 20200903
  13. STANGYL [TRIMIPRAMINE MALEATE] [Concomitant]
     Indication: Depression
     Dosage: 50 MILLIGRAM, BID
     Route: 048
  14. PANTOZOL [Concomitant]
     Active Substance: PANTOPRAZOLE SODIUM
     Indication: Chronic gastritis
     Dosage: 40 MILLIGRAM, QD
     Route: 048
     Dates: start: 20200910
  15. CALCIGEN D3 [Concomitant]
     Indication: Hypocalcaemia
     Dosage: 1250 MILLIGRAM, BID
     Route: 048
     Dates: start: 20201123
  16. POTASSIUM [Concomitant]
     Active Substance: POTASSIUM
     Indication: Hypokalaemia
     Dosage: 20 MILLILITER, AS NECESSARY
     Route: 042
     Dates: start: 20201112, end: 20201118
  17. ALPHA LIPON [Concomitant]
     Indication: Tremor
     Dosage: 600 MILLIGRAM
     Route: 048
     Dates: start: 20210210
  18. AKYNZEO [Concomitant]
     Active Substance: NETUPITANT\PALONOSETRON HYDROCHLORIDE
     Dosage: 300 MILLIGRAM, CYCLICAL
     Route: 048
     Dates: start: 20200902, end: 20210421
  19. ALIZAPRIDE HYDROCHLORIDE [Concomitant]
     Active Substance: ALIZAPRIDE HYDROCHLORIDE
     Indication: Nausea
     Dosage: 50 MILLIGRAM, AS NECESSARY
     Route: 048
     Dates: start: 20200910
  20. MINOCYCLINE [Concomitant]
     Active Substance: MINOCYCLINE HYDROCHLORIDE
     Dosage: 50 MILLIGRAM, BID
     Route: 048
     Dates: start: 20200902
  21. SIMVASTATIN [Concomitant]
     Active Substance: SIMVASTATIN
     Indication: Metabolic disorder
     Dosage: 20 MILLIGRAM, QD
     Route: 048
  22. IRINOTECAN [Concomitant]
     Active Substance: IRINOTECAN
     Dosage: 288-300 MILLIGRAM, CYCLICAL
     Route: 042
     Dates: start: 20201209, end: 20210505
  23. PREDNISONE [Concomitant]
     Active Substance: PREDNISONE
     Indication: Bronchospasm
     Dosage: 200 MILLIGRAM, QD
     Route: 042
     Dates: start: 20201028, end: 20201028
  24. ONDANSETRON [Concomitant]
     Active Substance: ONDANSETRON
     Indication: Nausea
     Dosage: 8 MILLIGRAM, QD
     Route: 042
     Dates: start: 20201111
  25. CEFPODOXIME [Concomitant]
     Active Substance: CEFPODOXIME
     Indication: C-reactive protein increased
     Dosage: 200 MILLIGRAM, BID
     Route: 048
     Dates: start: 20201112, end: 20201117
  26. MAGNESIUM OXIDE [Concomitant]
     Active Substance: MAGNESIUM OXIDE
     Indication: Hypomagnesaemia
     Dosage: 150 MILLIGRAM, BID
     Route: 048
     Dates: start: 20201118
  27. METOPROLOL [Concomitant]
     Active Substance: METOPROLOL
     Indication: Hypertension
     Dosage: 50 MILLIGRAM, QD
     Route: 048
     Dates: start: 2020
  28. PIROXICAM [Concomitant]
     Active Substance: PIROXICAM
     Indication: Abdominal pain upper
     Dosage: 10 MILLILITER, AS NECESSARY
     Route: 048
     Dates: start: 20201014
  29. BRICANYL [Concomitant]
     Active Substance: TERBUTALINE SULFATE
     Indication: Bronchospasm
     Dosage: 0.5 MILLIGRAM, QD
     Route: 058
     Dates: start: 20201028, end: 20201028
  30. CALCIUM [Concomitant]
     Active Substance: CALCIUM
     Indication: Hypocalcaemia
     Dosage: 100 MILLIGRAM, QD
     Route: 048
     Dates: start: 20201118
  31. ATROPINE [Concomitant]
     Active Substance: ATROPINE
     Dosage: 0.25 MILLIGRAM, CYCLICAL
     Route: 058
     Dates: start: 20201209, end: 20210421
  32. AMLODIPINE [Concomitant]
     Active Substance: AMLODIPINE BESYLATE
     Indication: Hypertension
     Dosage: 2.5 MILLIGRAM, QD
     Route: 048
     Dates: start: 2020, end: 20210118
  33. UNACID [SULTAMICILLIN TOSILATE] [Concomitant]
     Indication: Infection
     Dosage: 3 GRAM, QD
     Route: 042
     Dates: start: 20210113, end: 20210115
  34. POTASSIUM [Concomitant]
     Active Substance: POTASSIUM
     Indication: Hypokalaemia
     Dosage: 9999 UNK
     Route: 065
     Dates: start: 20210113, end: 20210118
  35. SODIUM PICOSULFATE [Concomitant]
     Active Substance: SODIUM PICOSULFATE
     Indication: Constipation
     Dosage: 15 DROP, AS NECESSARY
     Route: 048
     Dates: start: 20210120

REACTIONS (1)
  - Cachexia [Recovered/Resolved]

NARRATIVE: CASE EVENT DATE: 20210505
